FAERS Safety Report 5489534-9 (Version None)
Quarter: 2007Q4

REPORT INFORMATION
  Report Type: 
  Country: None (occurrence: None)
  Receive Date: 20071016
  Receipt Date: 20071016
  Transmission Date: 20080405
  Serious: Yes (Other)
  Sender: FDA-Public Use
  Company Number: None

PATIENT
  Sex: Female

DRUGS (6)
  1. REVLIMID [Suspect]
     Indication: MULTIPLE MYELOMA
     Dosage: 25MG  QD X 21D/28D  PO
     Route: 048
     Dates: start: 20070720, end: 20070907
  2. REVLIMID [Suspect]
  3. PROCRIT [Concomitant]
  4. DEXAMETHASONE 0.5MG TAB [Concomitant]
  5. FELODIPINE [Concomitant]
  6. PROMETHAZINE/CODEINE [Concomitant]

REACTIONS (2)
  - NEUTROPHIL COUNT DECREASED [None]
  - PLATELET COUNT DECREASED [None]
